FAERS Safety Report 6705947-9 (Version None)
Quarter: 2010Q2

REPORT INFORMATION
  Report Type: 
  Country: None (occurrence: None)
  Receive Date: 20100430
  Receipt Date: 20100430
  Transmission Date: 20101027
  Serious: Yes (Death, Life-Threatening, Hospitalization)
  Sender: FDA-Public Use
  Company Number: None

PATIENT
  Age: 55 Year
  Sex: Female
  Weight: 80.7403 kg

DRUGS (1)
  1. DARVOCET [Suspect]
     Indication: BACK PAIN
     Dosage: 1-2 TABLETS AS NEEDED FOR PAIN PO
     Route: 048
     Dates: start: 20100305, end: 20100308

REACTIONS (5)
  - HEPATOTOXICITY [None]
  - INTERNATIONAL NORMALISED RATIO ABNORMAL [None]
  - LABORATORY TEST ABNORMAL [None]
  - MEDICATION ERROR [None]
  - MULTI-ORGAN FAILURE [None]
